FAERS Safety Report 9048527 (Version 1)
Quarter: 2013Q1

REPORT INFORMATION
  Report Type: Spontaneous
  Country: US (occurrence: None)
  Receive Date: 20130130
  Receipt Date: 20130130
  Transmission Date: 20140127
  Serious: Yes (Hospitalization)
  Sender: FDA-Public Use
  Company Number: None

PATIENT
  Age: 62 Year
  Sex: Female
  Weight: 88.5 kg

DRUGS (15)
  1. MORPHINE [Suspect]
     Indication: SUPPORTIVE CARE
     Dosage: 01 HR PRN ? ??CHRONIC
     Route: 048
  2. METHADONE [Suspect]
     Indication: SUPPORTIVE CARE
     Dosage: Q8HR
     Route: 048
  3. CLONAZEPAM [Suspect]
     Route: 048
  4. TRAZODONE [Suspect]
     Route: 048
  5. LORAZEPAM [Suspect]
     Route: 048
  6. CELEXA [Concomitant]
  7. SENNA [Concomitant]
  8. PRILOSEC [Concomitant]
  9. ALBUTEROL [Concomitant]
  10. ATROVENT [Concomitant]
  11. XOPENEX [Concomitant]
  12. KCI [Concomitant]
  13. LASIX [Concomitant]
  14. ROBITUSSIN [Concomitant]
  15. PREDNISONE [Concomitant]

REACTIONS (7)
  - Fall [None]
  - Miosis [None]
  - Agitation [None]
  - Respiratory failure [None]
  - Encephalopathy [None]
  - Chronic obstructive pulmonary disease [None]
  - Asthenia [None]
